FAERS Safety Report 8932560 (Version 1)
Quarter: 2012Q4

REPORT INFORMATION
  Report Type: Spontaneous
  Country: US (occurrence: None)
  Receive Date: 20121121
  Receipt Date: 20121121
  Transmission Date: 20130627
  Serious: Yes (Other)
  Sender: FDA-Public Use
  Company Number: None

PATIENT
  Age: 44 Year
  Sex: Female
  Weight: 58.97 kg

DRUGS (2)
  1. PRAVASTATIN SODIUM [Suspect]
     Indication: HEART ATTACK
     Dates: start: 20120914, end: 20121007
  2. PRAVASTATIN SODIUM [Suspect]
     Indication: STROKE
     Dates: start: 20120914, end: 20121007

REACTIONS (6)
  - Swelling [None]
  - Dizziness [None]
  - Abdominal pain upper [None]
  - Decreased appetite [None]
  - Constipation [None]
  - Haemoptysis [None]
